FAERS Safety Report 8223925-8 (Version None)
Quarter: 2012Q1

REPORT INFORMATION
  Report Type: 
  Country: None (occurrence: None)
  Receive Date: 20120321
  Receipt Date: 20120316
  Transmission Date: 20120608
  Serious: Yes (Other)
  Sender: FDA-Public Use
  Company Number: US-PFIZER INC-2012049346

PATIENT
  Sex: Female

DRUGS (1)
  1. NEURONTIN [Suspect]
     Dosage: 300 MG, 2X/DAY

REACTIONS (6)
  - DEPRESSION [None]
  - MOVEMENT DISORDER [None]
  - OBESITY [None]
  - FIBROMYALGIA [None]
  - CHRONIC FATIGUE SYNDROME [None]
  - PAIN [None]
